FAERS Safety Report 5809857-0 (Version None)
Quarter: 2008Q3

REPORT INFORMATION
  Report Type: 
  Country: None (occurrence: None)
  Receive Date: 20080714
  Receipt Date: 20080714
  Transmission Date: 20090109
  Serious: Yes (Other)
  Sender: FDA-Public Use
  Company Number: None

PATIENT
  Age: 54 Year
  Sex: Female
  Weight: 63.5036 kg

DRUGS (2)
  1. LYRICA [Suspect]
     Dosage: 75 2 TIMES DAY PO
     Route: 048
     Dates: start: 20070825
  2. LYRICA [Suspect]
     Dosage: 50 2 TIMES DAY PO
     Route: 048
     Dates: start: 20080201

REACTIONS (8)
  - ANXIETY [None]
  - FEELING ABNORMAL [None]
  - GAIT DISTURBANCE [None]
  - HALLUCINATION [None]
  - MUSCLE SPASMS [None]
  - PARAESTHESIA [None]
  - SOMNOLENCE [None]
  - SUICIDAL IDEATION [None]
